FAERS Safety Report 26020353 (Version 1)
Quarter: 2025Q4

REPORT INFORMATION
  Report Type: Spontaneous
  Country: TR (occurrence: TR)
  Receive Date: 20251110
  Receipt Date: 20251110
  Transmission Date: 20260118
  Serious: Yes (Life-Threatening, Hospitalization)
  Sender: ACCORD
  Company Number: TR-Accord-511897

PATIENT
  Age: 35 Year
  Sex: Male

DRUGS (2)
  1. CAPECITABINE [Suspect]
     Active Substance: CAPECITABINE
     Indication: Rectal adenocarcinoma
     Dosage: CAPECITABINE 1,000 MG/M 2 ORALLY TWICE
     Route: 048
     Dates: start: 2023, end: 2023
  2. OXALIPLATIN [Concomitant]
     Active Substance: OXALIPLATIN
     Indication: Rectal adenocarcinoma
     Dosage: OXALIPLATIN 130 MG/M2 IV ON DAY 1 REPEATED EVERY 21 DAYS
     Dates: start: 2023, end: 2023

REACTIONS (12)
  - Febrile neutropenia [Recovered/Resolved]
  - Thrombocytopenia [Recovered/Resolved]
  - Stomatitis [Recovered/Resolved]
  - Diarrhoea [Recovered/Resolved]
  - International normalised ratio increased [Recovered/Resolved]
  - Hyperbilirubinaemia [Recovered/Resolved]
  - Acute kidney injury [Recovered/Resolved]
  - Anaemia [Recovered/Resolved]
  - Toxicity to various agents [Recovered/Resolved]
  - Electrolyte imbalance [Recovered/Resolved]
  - Haemodynamic instability [Recovered/Resolved]
  - Oral herpes [Recovered/Resolved]

NARRATIVE: CASE EVENT DATE: 20230101
